FAERS Safety Report 5499143-3 (Version None)
Quarter: 2007Q4

REPORT INFORMATION
  Report Type: 
  Country: None (occurrence: None)
  Receive Date: 20071026
  Receipt Date: 20071019
  Transmission Date: 20080405
  Serious: Yes (Other)
  Sender: FDA-Public Use
  Company Number: CA-ASTRAZENECA-2007UW24393

PATIENT
  Sex: Male
  Weight: 77.3 kg

DRUGS (9)
  1. CRESTOR [Suspect]
     Indication: BLOOD CHOLESTEROL
     Route: 048
     Dates: start: 20040201, end: 20071017
  2. CRESTOR [Suspect]
     Route: 048
     Dates: start: 20071019
  3. DIOVAN HCT [Concomitant]
     Indication: HYPERTENSION
     Dosage: 160 MG/ 12.5 MG
     Route: 048
     Dates: start: 20040201
  4. NOVO-BISOPROLOT [Concomitant]
     Indication: HYPERTENSION
     Route: 048
     Dates: start: 20070101
  5. METFORMIN [Concomitant]
     Indication: DIABETES MELLITUS
     Route: 048
     Dates: start: 20070101
  6. FUROSEMIDE [Concomitant]
     Indication: DIURETIC THERAPY
     Route: 048
     Dates: start: 20070101
  7. RATIO-OMEPRAZOLE [Concomitant]
     Indication: ABDOMINAL PAIN UPPER
     Route: 048
     Dates: start: 20061003
  8. ASAPHEN [Concomitant]
     Indication: ANTICOAGULANT THERAPY
     Route: 048
     Dates: start: 20070101
  9. NORVASC [Concomitant]
     Indication: HYPERTENSION
     Route: 048
     Dates: start: 20040201

REACTIONS (2)
  - GAIT DISTURBANCE [None]
  - MYALGIA [None]
